FAERS Safety Report 8708883 (Version 3)
Quarter: 2012Q4

REPORT INFORMATION
  Report Type: 
  Country: DE (occurrence: DE)
  Receive Date: 20120806
  Receipt Date: 20121120
  Transmission Date: 20130627
  Serious: Yes (Life-Threatening, Disabling, Other)
  Sender: FDA-Public Use
  Company Number: DE-ASTRAZENECA-2012SE54154

PATIENT
  Sex: Female

DRUGS (3)
  1. SEROQUEL PROLONG [Suspect]
     Indication: PSYCHOTIC DISORDER
     Route: 048
  2. SEROQUEL PROLONG [Suspect]
     Indication: PSYCHOTIC DISORDER
     Route: 048
     Dates: start: 2011, end: 2011
  3. SEROQUEL PROLONG [Suspect]
     Indication: PSYCHOTIC DISORDER
     Route: 048
     Dates: start: 2011

REACTIONS (8)
  - Intentional overdose [Unknown]
  - Suicide attempt [Recovered/Resolved]
  - Loss of consciousness [Recovered/Resolved with Sequelae]
  - Blindness unilateral [Not Recovered/Not Resolved]
  - Optic nerve injury [Unknown]
  - Mental impairment [Not Recovered/Not Resolved]
  - Psychomotor skills impaired [Not Recovered/Not Resolved]
  - Sleep disorder [Unknown]
